FAERS Safety Report 12052845 (Version 1)
Quarter: 2016Q1

REPORT INFORMATION
  Report Type: Spontaneous
  Country: CL (occurrence: CL)
  Receive Date: 20160209
  Receipt Date: 20160209
  Transmission Date: 20160526
  Serious: Yes (Hospitalization, Other)
  Sender: FDA-Public Use
  Company Number: CL-PFIZER INC-2016070221

PATIENT

DRUGS (2)
  1. SUTENT [Suspect]
     Active Substance: SUNITINIB MALATE
  2. EUTIROX [Concomitant]
     Active Substance: LEVOTHYROXINE SODIUM
     Dosage: 125

REACTIONS (7)
  - Blood pressure decreased [Unknown]
  - Tachycardia [Unknown]
  - Heart rate decreased [Not Recovered/Not Resolved]
  - Swelling face [Unknown]
  - Gait disturbance [Unknown]
  - Oral disorder [Unknown]
  - Peripheral swelling [Unknown]
